FAERS Safety Report 8863087 (Version 1)
Quarter: 2012Q4

REPORT INFORMATION
  Report Type: 
  Country: DE (occurrence: DE)
  Receive Date: 20121026
  Receipt Date: 20121026
  Transmission Date: 20130627
  Serious: Yes (Life-Threatening, Hospitalization, Other)
  Sender: FDA-Public Use
  Company Number: PHHY2012DE084137

PATIENT
  Sex: Male

DRUGS (1)
  1. CLOZAPINE [Suspect]
     Indication: SCHIZOPHRENIA
     Dosage: 400 mg per day.
     Route: 048
     Dates: start: 200611

REACTIONS (5)
  - Cardiomyopathy [Not Recovered/Not Resolved]
  - Dyspnoea [Unknown]
  - Ejection fraction decreased [Unknown]
  - Coronary artery disease [Unknown]
  - Inflammation [Unknown]
